FAERS Safety Report 7198290-8 (Version None)
Quarter: 2010Q4

REPORT INFORMATION
  Report Type: 
  Country: None (occurrence: None)
  Receive Date: 20101227
  Receipt Date: 20101214
  Transmission Date: 20110411
  Serious: Yes (Other)
  Sender: FDA-Public Use
  Company Number: PHHY2010CA52843

PATIENT
  Sex: Female
  Weight: 59.3 kg

DRUGS (7)
  1. ACLASTA/ZOLEDRONATE [Suspect]
     Indication: OSTEOPOROSIS
     Dosage: 5 MG/ 100 ML YEARLY
     Route: 042
     Dates: start: 20091218
  2. DIDROCAL [Concomitant]
     Dosage: 400 MG DAILY
  3. EVISTA [Concomitant]
     Dosage: 670 MG DAILY
  4. FORTEO [Concomitant]
     Dosage: 20 MG DAILY
  5. MIACALCIN [Concomitant]
     Dosage: 200 UI DAILY
  6. VITAMIN D [Concomitant]
     Dosage: 2000 MG DAILY
     Dates: end: 20010101
  7. CALCIUM [Concomitant]
     Dosage: 1000 MG DAILY
     Dates: end: 20010101

REACTIONS (2)
  - RIB FRACTURE [None]
  - STERNAL FRACTURE [None]
